FAERS Safety Report 22097610 (Version 2)
Quarter: 2023Q2

REPORT INFORMATION
  Report Type: Spontaneous
  Country: US (occurrence: US)
  Receive Date: 20230315
  Receipt Date: 20230418
  Transmission Date: 20230722
  Serious: No
  Sender: FDA-Public Use
  Company Number: US-PFIZER INC-PV202300044975

PATIENT
  Age: 65 Year
  Sex: Female
  Weight: 77.551 kg

DRUGS (2)
  1. PAXLOVID [Suspect]
     Active Substance: NIRMATRELVIR\RITONAVIR
     Indication: COVID-19 treatment
     Dosage: 3 DF, 2X/DAY
     Dates: start: 20230223, end: 202302
  2. AMOXICILLIN [Concomitant]
     Active Substance: AMOXICILLIN
     Indication: Streptococcal infection
     Dosage: UNK
     Dates: start: 20230220

REACTIONS (5)
  - COVID-19 [Recovered/Resolved]
  - Disease recurrence [Recovered/Resolved]
  - Diarrhoea [Recovered/Resolved]
  - Taste disorder [Recovered/Resolved]
  - Abdominal discomfort [Recovered/Resolved]

NARRATIVE: CASE EVENT DATE: 20230101
